FAERS Safety Report 9426296 (Version 1)
Quarter: 2013Q3

REPORT INFORMATION
  Report Type: Spontaneous
  Country: PH (occurrence: PH)
  Receive Date: 20130730
  Receipt Date: 20130730
  Transmission Date: 20140515
  Serious: Yes (Hospitalization)
  Sender: FDA-Public Use
  Company Number: PH-MERCK-1307PHL013980

PATIENT
  Age: 62 Year
  Sex: Female

DRUGS (1)
  1. JANUVIA [Suspect]
     Dosage: 50 MG, QD
     Route: 048

REACTIONS (1)
  - Refusal of treatment by patient [Unknown]
